FAERS Safety Report 4315034-5 (Version None)
Quarter: 2004Q1

REPORT INFORMATION
  Report Type: 
  Country: None (occurrence: None)
  Receive Date: 20040309
  Receipt Date: 20040212
  Transmission Date: 20041129
  Serious: Yes (Death)
  Sender: FDA-Public Use
  Company Number: OMPQ-NO-0402S-0134

PATIENT
  Age: 70 Year
  Sex: Male

DRUGS (2)
  1. OMNIPAQUE 70 [Suspect]
     Indication: AORTIC ANEURYSM
     Dosage: 3 ML, SINGLE DOSE, I.V.
     Route: 042
     Dates: start: 20040206, end: 20040206
  2. HYDROCORTISONE SODIUM SUCCINATE (SAXIZON) [Concomitant]

REACTIONS (6)
  - AORTIC DISSECTION [None]
  - BLOOD PRESSURE DECREASED [None]
  - CARDIAC TAMPONADE [None]
  - DISEASE PROGRESSION [None]
  - NAUSEA [None]
  - RESPIRATORY ARREST [None]
